FAERS Safety Report 17578814 (Version 1)
Quarter: 2020Q1

REPORT INFORMATION
  Report Type: Spontaneous
  Country: US (occurrence: US)
  Receive Date: 20200325
  Receipt Date: 20200325
  Transmission Date: 20200409
  Serious: No
  Sender: FDA-Public Use
  Company Number: US-009507513-2003USA006601

PATIENT
  Age: 13 Year
  Sex: Female

DRUGS (1)
  1. PROVENTIL [Suspect]
     Active Substance: ALBUTEROL
     Dosage: 2 PUFFS EVERY 4 TO 6 HOURS AS NEEDED

REACTIONS (4)
  - Product dose omission [Unknown]
  - Poor quality device used [Unknown]
  - Product quality issue [Unknown]
  - Anger [Unknown]

NARRATIVE: CASE EVENT DATE: 202003
